FAERS Safety Report 16940939 (Version 1)
Quarter: 2019Q4

REPORT INFORMATION
  Report Type: Spontaneous
  Country: US (occurrence: US)
  Receive Date: 20191021
  Receipt Date: 20191021
  Transmission Date: 20200122
  Serious: No
  Sender: FDA-Public Use
  Company Number: US-NEOPHARMA INC-000220

PATIENT

DRUGS (30)
  1. AUGMENTIN [Suspect]
     Active Substance: AMOXICILLIN\CLAVULANATE POTASSIUM
     Indication: PRODUCT USED FOR UNKNOWN INDICATION
  2. DOXYCYCLINE. [Concomitant]
     Active Substance: DOXYCYCLINE
     Indication: PRODUCT USED FOR UNKNOWN INDICATION
     Dosage: TAKE 1 TABLET BY MOUTH TWICE DAILY
     Route: 048
  3. LEFLUNOMIDE. [Suspect]
     Active Substance: LEFLUNOMIDE
     Indication: RHEUMATOID ARTHRITIS
     Dates: start: 200412, end: 201702
  4. CATAPRES [Concomitant]
     Active Substance: CLONIDINE HYDROCHLORIDE
     Indication: PRODUCT USED FOR UNKNOWN INDICATION
     Dosage: TAKE ONE TABLET BY MOUTH TWICE DAILY
     Route: 048
  5. VIBRA [Concomitant]
     Indication: PRODUCT USED FOR UNKNOWN INDICATION
     Dosage: TAKE 1 TABLET BY MOUTH  TWICE DAILY
     Route: 048
  6. SYNTHROID [Concomitant]
     Active Substance: LEVOTHYROXINE SODIUM
     Indication: PRODUCT USED FOR UNKNOWN INDICATION
     Dosage: TAKE ONE TABLET BY MOUTH ONCE DAILY
     Route: 048
  7. XELJANZ [Concomitant]
     Active Substance: TOFACITINIB CITRATE
     Indication: PRODUCT USED FOR UNKNOWN INDICATION
     Dosage: TAKE 1 TABLET (5 MG) BY MOUTH TWICE DAILY.
     Route: 048
  8. ECOTRIN [Concomitant]
     Active Substance: ASPIRIN
     Indication: PRODUCT USED FOR UNKNOWN INDICATION
     Dosage: TAKE 1 TABLET BY MOUTH ONCE DAILY
     Route: 048
  9. IPRATROPIUM-ALBUTEROL [Concomitant]
     Active Substance: ALBUTEROL\IPRATROPIUM
     Indication: PRODUCT USED FOR UNKNOWN INDICATION
     Dosage: 0.5MG-3MG(2.5MG BASE)/3ML NEBU, INHALE AS INSTRUCTED ONCE DAILY.
     Route: 055
  10. ANORO ELLIPTA [Concomitant]
     Active Substance: UMECLIDINIUM BROMIDE\VILANTEROL TRIFENATATE
     Indication: PRODUCT USED FOR UNKNOWN INDICATION
     Dosage: 62.5-25 MCG/ACTUATION INHALER. INHALE 1 INHALATION AS INSTRUCTED ONCE DAILY
     Route: 055
  11. PROAIR HFA [Concomitant]
     Active Substance: ALBUTEROL SULFATE
     Indication: COUGH
     Dosage: 90 MCG/ACTUATION INHALER. INHALE 2 PUFFS AS INSTRUCTED EVERY 4 HOURS AS NEEDED
     Route: 055
  12. PRESERVISION AREDS [Concomitant]
     Active Substance: MINERALS\VITAMINS
     Indication: PRODUCT USED FOR UNKNOWN INDICATION
     Dosage: TAKE 1 CAPSULE BY MOUTH TWICE DAILY
     Route: 048
  13. ENBREL [Suspect]
     Active Substance: ETANERCEPT
     Indication: RHEUMATOID ARTHRITIS
     Dates: start: 201601, end: 201901
  14. EUFLEXXA [Suspect]
     Active Substance: HYALURONATE SODIUM
     Indication: PRODUCT USED FOR UNKNOWN INDICATION
  15. CYANOCOBALAMIN. [Concomitant]
     Active Substance: CYANOCOBALAMIN
     Indication: PRODUCT USED FOR UNKNOWN INDICATION
     Dosage: 1000 MCG/ML INJECTION. MONTHLY
  16. ORENCIA [Suspect]
     Active Substance: ABATACEPT
     Indication: RHEUMATOID ARTHRITIS
     Dates: start: 201811, end: 201905
  17. RECLAST [Suspect]
     Active Substance: ZOLEDRONIC ACID
     Indication: PRODUCT USED FOR UNKNOWN INDICATION
  18. VOLTAREN [Concomitant]
     Active Substance: DICLOFENAC SODIUM
     Indication: PRODUCT USED FOR UNKNOWN INDICATION
     Dosage: APPLY 4G TO AFFECTED AREA FOUR TIMES DAILY
     Route: 061
  19. METHOTREXATE. [Suspect]
     Active Substance: METHOTREXATE
     Indication: RHEUMATOID ARTHRITIS
     Dates: start: 200312, end: 200412
  20. REMICADE [Suspect]
     Active Substance: INFLIXIMAB
     Indication: RHEUMATOID ARTHRITIS
     Dates: start: 200708, end: 2014
  21. PERCOCET [Suspect]
     Active Substance: ACETAMINOPHEN\OXYCODONE HYDROCHLORIDE
     Indication: PRODUCT USED FOR UNKNOWN INDICATION
  22. HUMIRA [Suspect]
     Active Substance: ADALIMUMAB
     Indication: RHEUMATOID ARTHRITIS
     Dates: start: 201509, end: 201601
  23. AVELOX [Suspect]
     Active Substance: MOXIFLOXACIN HYDROCHLORIDE
     Indication: PRODUCT USED FOR UNKNOWN INDICATION
  24. KEFLEX [Concomitant]
     Active Substance: CEPHALEXIN
     Indication: PRODUCT USED FOR UNKNOWN INDICATION
     Dosage: TAKE 1 CAPSULE BY MOUTH FOUR TIMES DAILY FOR 10 DAYS
     Route: 048
  25. ADVIL [Concomitant]
     Active Substance: IBUPROFEN
     Indication: PRODUCT USED FOR UNKNOWN INDICATION
     Dosage: TAKE 600 MG BY MOUTH EVERY MORNING.
     Route: 048
  26. CRESTOR [Concomitant]
     Active Substance: ROSUVASTATIN CALCIUM
     Indication: PRODUCT USED FOR UNKNOWN INDICATION
     Dosage: TAKE 1 TABLET BY MOUTH ONCE DAILY.
     Route: 048
  27. ZYRTEC-D [Concomitant]
     Active Substance: CETIRIZINE HYDROCHLORIDE\PSEUDOEPHEDRINE HYDROCHLORIDE
     Indication: PRODUCT USED FOR UNKNOWN INDICATION
     Dosage: 5-120 MG PER TABLET. TAKE 1 TABLET BY MOUTH TWICE DAILY
     Route: 048
  28. DYNAPEN [Concomitant]
     Active Substance: DICLOXACILLIN SODIUM
     Indication: PRODUCT USED FOR UNKNOWN INDICATION
     Dosage: TAKE 4 PILLS 1 HOUR PRIOR TO PROCEDURE ON 2/6/19
     Route: 048
     Dates: start: 20190206
  29. DEFINITY [Concomitant]
     Active Substance: PERFLUTREN
     Indication: PRODUCT USED FOR UNKNOWN INDICATION
     Dosage: 1.1 MG/ML INJECTION (TO BE PROVIDED WITH ECHO PROCEDURE). INJECT 1.3 ML INTRAVENOUSLY AS DIRECTED.
     Route: 042
  30. CALCIUM CITRATE-VITAMIN D3 [Concomitant]
     Active Substance: CALCIUM CITRATE\CHOLECALCIFEROL
     Indication: PRODUCT USED FOR UNKNOWN INDICATION
     Dosage: TAKE 3 TABLETS BY MOUTH ONCE DAILY.
     Route: 048

REACTIONS (1)
  - Hypersensitivity [Unknown]
